FAERS Safety Report 8161177-8 (Version None)
Quarter: 2012Q1

REPORT INFORMATION
  Report Type: 
  Country: None (occurrence: None)
  Receive Date: 20120103
  Receipt Date: 20111116
  Transmission Date: 20120608
  Serious: No
  Sender: FDA-Public Use
  Company Number: AE-2011-003554

PATIENT
  Age: 48 Year
  Sex: Female
  Weight: 63.5036 kg

DRUGS (11)
  1. PAROXETINE (FLUOXETINE) [Concomitant]
  2. INCIVEK [Suspect]
     Dosage: 144000 MG (750 MG, 8 IN 1 HR), ORAL
     Route: 048
     Dates: start: 20110914
  3. PEGASYS [Concomitant]
  4. SOMA [Concomitant]
  5. ALBUTEROL [Concomitant]
  6. GABAPENTIN [Concomitant]
  7. RIBAVIRIN [Concomitant]
  8. HYDROCODONE/APAP (PROCET/USA/) [Concomitant]
  9. CARISPRODOL (CARISOPRODOL) [Concomitant]
  10. PHENERGAN [Concomitant]
  11. LORAZEPAM [Concomitant]

REACTIONS (4)
  - ERYTHEMA [None]
  - ALOPECIA [None]
  - SWELLING [None]
  - INSOMNIA [None]
